FAERS Safety Report 20627036 (Version 2)
Quarter: 2022Q2

REPORT INFORMATION
  Report Type: Spontaneous
  Country: BR (occurrence: BR)
  Receive Date: 20220323
  Receipt Date: 20220520
  Transmission Date: 20220720
  Serious: Yes (Hospitalization, Other)
  Sender: FDA-Public Use
  Company Number: BR-SA-SAC20220317001746

PATIENT
  Age: 62 Year
  Sex: Male
  Weight: 88.35 kg

DRUGS (10)
  1. SOLIQUA 100/33 [Suspect]
     Active Substance: INSULIN GLARGINE\LIXISENATIDE
     Indication: Type 2 diabetes mellitus
     Dosage: 20 U, QD
     Route: 058
     Dates: start: 20220220, end: 20220312
  2. METFORMIN [Concomitant]
     Active Substance: METFORMIN HYDROCHLORIDE
     Dosage: 2 G, QD
     Dates: start: 2010
  3. GLICLAZIDE [Concomitant]
     Active Substance: GLICLAZIDE
     Dosage: 60 MG, QD
     Dates: start: 2015
  4. JARDIANCE [Concomitant]
     Active Substance: EMPAGLIFLOZIN
     Dosage: 10 MG, QD
     Dates: start: 2019
  5. LOSARTAN [Concomitant]
     Active Substance: LOSARTAN
     Dosage: 100 MG, QD
     Dates: start: 2010
  6. ROSUVASTATIN [Concomitant]
     Active Substance: ROSUVASTATIN
     Dosage: 10 MG, QD
     Dates: start: 2010
  7. LANTUS [Concomitant]
     Active Substance: INSULIN GLARGINE
     Dosage: VARYING DOSES
     Dates: start: 2012, end: 2021
  8. XULTOPHY 100/3.6 [Concomitant]
     Active Substance: INSULIN DEGLUDEC\LIRAGLUTIDE
     Dosage: 30 U
     Dates: start: 2020, end: 202201
  9. METOPROLOL SUCCINATE [Concomitant]
     Active Substance: METOPROLOL SUCCINATE
     Dosage: 50 MG, QD
     Dates: start: 2012
  10. ASPIRIN [Concomitant]
     Active Substance: ASPIRIN
     Dosage: 100 MG, QD
     Dates: start: 2019

REACTIONS (2)
  - Pancreatitis acute [Not Recovered/Not Resolved]
  - Pancreatic enzymes abnormal [Recovered/Resolved]

NARRATIVE: CASE EVENT DATE: 20220312
